FAERS Safety Report 10035769 (Version 2)
Quarter: 2014Q1

REPORT INFORMATION
  Report Type: Report from Study
  Country: DE (occurrence: DE)
  Receive Date: 20140325
  Receipt Date: 20140327
  Transmission Date: 20141002
  Serious: Yes (Death)
  Sender: FDA-Public Use
  Company Number: DE-ABBVIE-14P-062-1216269-00

PATIENT
  Age: 80 Year
  Sex: Male

DRUGS (8)
  1. LEUPRORELIN DEPOT [Suspect]
     Indication: PROSTATE CANCER
     Route: 065
     Dates: start: 20110921, end: 20130709
  2. ANTIANDROGENS [Concomitant]
     Indication: PRODUCT USED FOR UNKNOWN INDICATION
  3. DIURETICS [Concomitant]
     Indication: PRODUCT USED FOR UNKNOWN INDICATION
  4. COUMARIN [Concomitant]
     Indication: PRODUCT USED FOR UNKNOWN INDICATION
  5. BETA BLOCKING AGENTS [Concomitant]
     Indication: PRODUCT USED FOR UNKNOWN INDICATION
  6. ACETYLSALICYLIC ACID [Concomitant]
     Indication: PRODUCT USED FOR UNKNOWN INDICATION
  7. ANTICHOLINERGIC AGENTS [Concomitant]
     Indication: PRODUCT USED FOR UNKNOWN INDICATION
  8. ALPHA BLOCKING AGENT NOS [Concomitant]
     Indication: PRODUCT USED FOR UNKNOWN INDICATION

REACTIONS (1)
  - Death [Fatal]
